FAERS Safety Report 12778276 (Version 2)
Quarter: 2016Q4

REPORT INFORMATION
  Report Type: Spontaneous
  Country: BR (occurrence: BR)
  Receive Date: 20160926
  Receipt Date: 20161010
  Transmission Date: 20170207
  Serious: Yes (Other)
  Sender: FDA-Public Use
  Company Number: BR-ROCHE-1825851

PATIENT
  Age: 64 Year
  Sex: Female
  Weight: 52 kg

DRUGS (9)
  1. NESINA [Concomitant]
     Active Substance: ALOGLIPTIN BENZOATE
     Indication: DIABETES MELLITUS
     Route: 048
  2. DIPYRONE [Concomitant]
     Active Substance: DIPYRONE
     Route: 048
  3. ENALAPRIL MALEATE. [Concomitant]
     Active Substance: ENALAPRIL MALEATE
     Indication: HYPERTENSION
     Route: 048
     Dates: start: 2015
  4. ABLOK PLUS [Concomitant]
     Active Substance: ATENOLOL\CHLORTHALIDONE
     Indication: HYPERTENSION
     Route: 048
  5. CLINDAMYCIN. [Concomitant]
     Active Substance: CLINDAMYCIN
     Indication: OTITIS MEDIA
     Route: 042
     Dates: start: 20160830, end: 20160831
  6. AZUKON [Concomitant]
     Active Substance: GLICLAZIDE
     Indication: DIABETES MELLITUS
     Dosage: AZUKON MR,
     Route: 048
  7. ZINNAT [Concomitant]
     Active Substance: CEFUROXIME AXETIL
  8. ROCEFIN [Suspect]
     Active Substance: CEFTRIAXONE SODIUM
     Indication: OTITIS MEDIA
     Route: 042
     Dates: start: 20160830, end: 20160831
  9. PROTOS (BRAZIL) [Concomitant]
     Active Substance: STRONTIUM RANELATE
     Indication: OSTEOPENIA
     Route: 048
     Dates: start: 2014

REACTIONS (3)
  - Deafness [Not Recovered/Not Resolved]
  - Faeces discoloured [Recovered/Resolved]
  - Dizziness [Not Recovered/Not Resolved]

NARRATIVE: CASE EVENT DATE: 20160901
